FAERS Safety Report 6151053-4 (Version None)
Quarter: 2009Q2

REPORT INFORMATION
  Report Type: 
  Country: None (occurrence: None)
  Receive Date: 20090410
  Receipt Date: 20090402
  Transmission Date: 20091009
  Serious: Yes (Hospitalization)
  Sender: FDA-Public Use
  Company Number: US-JNJFOC-20090401524

PATIENT
  Sex: Male
  Weight: 72.58 kg

DRUGS (9)
  1. DURAGESIC-100 [Suspect]
     Indication: NEUROPATHY PERIPHERAL
     Route: 062
  2. LODINE [Concomitant]
     Indication: ARTHRITIS
     Route: 048
  3. CADUET [Concomitant]
     Indication: BLOOD CHOLESTEROL
     Dosage: 10/40 ONCE A DAY
     Route: 048
  4. PLAVIX [Concomitant]
     Indication: CARDIAC DISORDER
     Route: 048
  5. LASIX [Concomitant]
     Indication: CARDIAC DISORDER
     Route: 048
  6. LISINOPRIL [Concomitant]
     Indication: CARDIAC DISORDER
     Route: 048
  7. NEURONTIN [Concomitant]
     Indication: NEURALGIA
     Dosage: 300 MG/3 CAPSULES/TID
     Route: 048
  8. TOPROL-XL [Concomitant]
     Indication: DRUG USE FOR UNKNOWN INDICATION
     Route: 048
  9. PROPONIX [Concomitant]
     Indication: DRUG USE FOR UNKNOWN INDICATION
     Route: 048

REACTIONS (2)
  - CARDIAC FAILURE CONGESTIVE [None]
  - CORONARY ARTERY OCCLUSION [None]
